FAERS Safety Report 5242221-4 (Version None)
Quarter: 2007Q1

REPORT INFORMATION
  Report Type: 
  Country: None (occurrence: None)
  Receive Date: 20070215
  Receipt Date: 20070215
  Transmission Date: 20070707
  Serious: Yes (Death)
  Sender: FDA-Public Use
  Company Number: None

PATIENT
  Age: 88 Year
  Sex: Male
  Weight: 36.2878 kg

DRUGS (2)
  1. NAMENDA [Suspect]
  2. REMERON [Suspect]

REACTIONS (4)
  - ANOREXIA [None]
  - ASTHENIA [None]
  - STARVATION [None]
  - WEIGHT DECREASED [None]
